FAERS Safety Report 11902062 (Version 1)
Quarter: 2016Q1

REPORT INFORMATION
  Report Type: Report from Study
  Country: US (occurrence: US)
  Receive Date: 20160108
  Receipt Date: 20160108
  Transmission Date: 20160526
  Serious: Yes (Other)
  Sender: FDA-Public Use
  Company Number: US-TAKEDA-2016TUS000188

PATIENT
  Sex: Female
  Weight: 141.5 kg

DRUGS (4)
  1. NALTREXONE, BUPROPION [Suspect]
     Active Substance: BUPROPION HYDROCHLORIDE\NALTREXONE HYDROCHLORIDE
     Indication: OBESITY
     Dosage: 8/90 MG, UNK
     Route: 065
     Dates: start: 2015, end: 2015
  2. DIAZEPAM. [Concomitant]
     Active Substance: DIAZEPAM
     Indication: RESTLESS LEGS SYNDROME
  3. NALTREXONE, BUPROPION [Suspect]
     Active Substance: BUPROPION HYDROCHLORIDE\NALTREXONE HYDROCHLORIDE
     Dosage: 8/90 MG, QID
     Route: 048
     Dates: start: 2015, end: 2015
  4. NALTREXONE, BUPROPION [Suspect]
     Active Substance: BUPROPION HYDROCHLORIDE\NALTREXONE HYDROCHLORIDE
     Dosage: 8/90 MG, UNK
     Route: 048
     Dates: start: 2015, end: 2015

REACTIONS (3)
  - Hypertension [Recovered/Resolved]
  - Chest pain [Recovered/Resolved]
  - Cardiac flutter [Recovered/Resolved]

NARRATIVE: CASE EVENT DATE: 2015
